FAERS Safety Report 5472680-3 (Version None)
Quarter: 2007Q4

REPORT INFORMATION
  Report Type: 
  Country: None (occurrence: None)
  Receive Date: 20071001
  Receipt Date: 20061027
  Transmission Date: 20080405
  Serious: Yes (Other)
  Sender: FDA-Public Use
  Company Number: US-ASTRAZENECA-2006UW17703

PATIENT
  Age: 71 Year
  Sex: Female
  Weight: 88 kg

DRUGS (5)
  1. ARIMIDEX [Suspect]
     Indication: BREAST CANCER
     Route: 048
     Dates: start: 20020101, end: 20060101
  2. BENICAR [Concomitant]
  3. TOPROL-XL [Concomitant]
  4. TAZITIA [Concomitant]
  5. ASTELIN [Concomitant]

REACTIONS (3)
  - INCREASED UPPER AIRWAY SECRETION [None]
  - PHARYNGOLARYNGEAL PAIN [None]
  - SINUSITIS [None]
